FAERS Safety Report 16024822 (Version 2)
Quarter: 2019Q1

REPORT INFORMATION
  Report Type: Report from Study
  Country: US (occurrence: US)
  Receive Date: 20190301
  Receipt Date: 20190322
  Transmission Date: 20190418
  Serious: Yes (Hospitalization, Other)
  Sender: FDA-Public Use
  Company Number: US-ALEXION PHARMACEUTICALS INC.-A201902649

PATIENT
  Sex: Female

DRUGS (1)
  1. SOLIRIS [Suspect]
     Active Substance: ECULIZUMAB
     Indication: PAROXYSMAL NOCTURNAL HAEMOGLOBINURIA
     Dosage: UNK, Q2W
     Route: 042

REACTIONS (6)
  - Inappropriate schedule of product administration [Recovered/Resolved]
  - Pyrexia [Unknown]
  - Asthenia [Unknown]
  - Dialysis [Recovered/Resolved]
  - Haemoglobinuria [Unknown]
  - Haemolysis [Unknown]
